FAERS Safety Report 21141025 (Version 1)
Quarter: 2022Q3

REPORT INFORMATION
  Report Type: Spontaneous
  Country: RU (occurrence: RU)
  Receive Date: 20220728
  Receipt Date: 20220728
  Transmission Date: 20221027
  Serious: Yes (Other)
  Sender: FDA-Public Use
  Company Number: RU-AMGEN-RUSSP2022126979

PATIENT
  Age: 36 Year
  Sex: Female

DRUGS (1)
  1. CINACALCET HYDROCHLORIDE [Suspect]
     Active Substance: CINACALCET HYDROCHLORIDE
     Indication: Hypercalcaemia
     Dosage: 30 MILLIGRAM, QD
     Route: 065

REACTIONS (5)
  - Parathyroid tumour benign [Unknown]
  - Bone density decreased [Unknown]
  - Blood parathyroid hormone decreased [Recovered/Resolved]
  - Vitamin D decreased [Recovered/Resolved]
  - Blood calcium increased [Recovered/Resolved]
